FAERS Safety Report 11806361 (Version 1)
Quarter: 2015Q4

REPORT INFORMATION
  Report Type: Spontaneous
  Country: US (occurrence: US)
  Receive Date: 20151207
  Receipt Date: 20151207
  Transmission Date: 20160305
  Serious: Yes (Other)
  Sender: FDA-Public Use
  Company Number: US-REGENERON PHARMACEUTICALS, INC.-2015-10785

PATIENT

DRUGS (7)
  1. ASA [Concomitant]
     Active Substance: ASPIRIN
  2. EYLEA [Suspect]
     Active Substance: AFLIBERCEPT
     Indication: NEOVASCULAR AGE-RELATED MACULAR DEGENERATION
     Dosage: 2 MG MILLIGRAM(S), UNK, LEFT EYE (OS)
     Route: 031
     Dates: start: 20141107
  3. EYLEA [Suspect]
     Active Substance: AFLIBERCEPT
     Dosage: 2 MG MILLIGRAM(S), UNK, OS
     Route: 031
     Dates: start: 20150126, end: 20150126
  4. COUMADIN [Concomitant]
     Active Substance: WARFARIN SODIUM
  5. NORVASC [Concomitant]
     Active Substance: AMLODIPINE BESYLATE
  6. TIMOLOL. [Concomitant]
     Active Substance: TIMOLOL
  7. EYLEA [Suspect]
     Active Substance: AFLIBERCEPT
     Dosage: 2 MG MILLIGRAM(S), UNK, RIGHT EYE (OD)
     Route: 031
     Dates: start: 20140812

REACTIONS (2)
  - Non-infectious endophthalmitis [Recovered/Resolved]
  - Uveitis [Recovered/Resolved]

NARRATIVE: CASE EVENT DATE: 20150205
